FAERS Safety Report 24922524 (Version 1)
Quarter: 2025Q1

REPORT INFORMATION
  Report Type: Spontaneous
  Country: JP (occurrence: JP)
  Receive Date: 20250204
  Receipt Date: 20250204
  Transmission Date: 20250409
  Serious: Yes (Hospitalization, Other)
  Sender: OTSUKA
  Company Number: JP-OTSUKA-2025_002330

PATIENT
  Age: 9 Decade
  Sex: Male

DRUGS (7)
  1. REXULTI [Suspect]
     Active Substance: BREXPIPRAZOLE
     Indication: Dementia Alzheimer^s type
     Route: 048
  2. REXULTI [Suspect]
     Active Substance: BREXPIPRAZOLE
     Indication: Irritability
  3. REXULTI [Suspect]
     Active Substance: BREXPIPRAZOLE
     Indication: Agitation
  4. REXULTI [Suspect]
     Active Substance: BREXPIPRAZOLE
     Indication: Aggression
  5. RISPERDAL [Suspect]
     Active Substance: RISPERIDONE
     Indication: Agitation
     Route: 048
  6. BLONANSERIN [Concomitant]
     Active Substance: BLONANSERIN
     Indication: Agitation
     Route: 062
  7. BLONANSERIN [Concomitant]
     Active Substance: BLONANSERIN
     Indication: Irritability

REACTIONS (1)
  - Pneumonia aspiration [Recovered/Resolved]

NARRATIVE: CASE EVENT DATE: 20241218
